FAERS Safety Report 5662471-2 (Version None)
Quarter: 2008Q1

REPORT INFORMATION
  Report Type: 
  Country: None (occurrence: None)
  Receive Date: 20080310
  Receipt Date: 20080310
  Transmission Date: 20080703
  Serious: Yes (Hospitalization)
  Sender: FDA-Public Use
  Company Number: None

PATIENT
  Sex: Female
  Weight: 55.79 kg

DRUGS (5)
  1. CISPLATIN [Suspect]
     Dosage: 47 MG
  2. ERBITUX [Suspect]
     Dosage: 388 MG
  3. COUMADIN [Concomitant]
  4. KLONOPIN [Concomitant]
  5. OXYCODONE HCL [Concomitant]

REACTIONS (4)
  - HAEMOGLOBIN DECREASED [None]
  - HEART RATE INCREASED [None]
  - PLATELET COUNT DECREASED [None]
  - URINARY TRACT INFECTION [None]
